FAERS Safety Report 11792622 (Version 1)
Quarter: 2015Q4

REPORT INFORMATION
  Report Type: Spontaneous
  Country: PT (occurrence: PT)
  Receive Date: 20151202
  Receipt Date: 20151202
  Transmission Date: 20160305
  Serious: Yes (Other)
  Sender: FDA-Public Use
  Company Number: PT-ACCORD-035812

PATIENT
  Age: 35 Year
  Sex: Male
  Weight: 45 kg

DRUGS (11)
  1. FOSAPREPITANT DIMEGLUMINE [Concomitant]
     Active Substance: FOSAPREPITANT DIMEGLUMINE
     Indication: PREMEDICATION
     Route: 042
     Dates: start: 20151109
  2. RANITIDINE [Concomitant]
     Active Substance: RANITIDINE\RANITIDINE HYDROCHLORIDE
     Indication: PREMEDICATION
     Route: 042
     Dates: start: 20151109
  3. MAGNESIUM SULFATE. [Concomitant]
     Active Substance: MAGNESIUM SULFATE
  4. PALONOSETRON/PALONOSETRON HYDROCHLORIDE [Concomitant]
     Indication: PREMEDICATION
     Route: 042
     Dates: start: 20151109
  5. CISPLATIN ACCORD [Suspect]
     Active Substance: CISPLATIN
     Indication: GASTRIC CANCER
     Dosage: INFUSION
     Route: 042
     Dates: start: 20151015, end: 20151109
  6. FLUOROURACIL. [Concomitant]
     Active Substance: FLUOROURACIL
     Indication: GASTRIC CANCER
     Dates: start: 20151015, end: 20151019
  7. POTASSIUM [Concomitant]
     Active Substance: POTASSIUM
  8. DEXAMETHASONE. [Concomitant]
     Active Substance: DEXAMETHASONE
     Indication: PREMEDICATION
     Route: 048
     Dates: start: 20151109
  9. EPIRUBICIN [Concomitant]
     Active Substance: EPIRUBICIN
     Indication: GASTRIC CANCER
     Dates: start: 20151015
  10. FUROSEMIDE. [Concomitant]
     Active Substance: FUROSEMIDE
  11. SODIUM CHLORIDE. [Concomitant]
     Active Substance: SODIUM CHLORIDE
     Dosage: 1000 ML OF SODIUM CHLORIDE AT 0.9% (FOR CISPLATIN DILUTION)
     Route: 042
     Dates: start: 20151109

REACTIONS (5)
  - Hyperhidrosis [Recovered/Resolved]
  - Feeling hot [Recovered/Resolved]
  - Erythema [Recovered/Resolved]
  - Off label use [Unknown]
  - Abdominal pain [Recovered/Resolved]

NARRATIVE: CASE EVENT DATE: 20151109
